FAERS Safety Report 19846058 (Version 1)
Quarter: 2021Q3

REPORT INFORMATION
  Report Type: Other
  Country: CO (occurrence: CO)
  Receive Date: 20210917
  Receipt Date: 20210917
  Transmission Date: 20211014
  Serious: Yes (Other)
  Sender: FDA-Public Use
  Company Number: CO-ROCHE-2883420

PATIENT
  Age: 64 Year
  Sex: Female

DRUGS (6)
  1. DESLORATADINE. [Concomitant]
     Active Substance: DESLORATADINE
     Indication: HYPERSENSITIVITY
     Dosage: UNK, Q24H (10 YEARS)
     Route: 048
  2. XOLAIR [Suspect]
     Active Substance: OMALIZUMAB
     Indication: ASTHMA
     Dosage: 450 MG, QMO
     Route: 058
  3. MONTELUKAST [Concomitant]
     Active Substance: MONTELUKAST SODIUM
     Indication: ASTHMA
     Dosage: UNK, Q24H
     Route: 048
     Dates: start: 2008
  4. XOLAIR [Suspect]
     Active Substance: OMALIZUMAB
     Route: 058
     Dates: start: 2008
  5. LOSARTAN. [Concomitant]
     Active Substance: LOSARTAN
     Indication: HYPERTENSION
     Dosage: 1 DF, Q12H (10 YEARS)
     Route: 048
  6. LOVASTATIN. [Concomitant]
     Active Substance: LOVASTATIN
     Indication: BLOOD CHOLESTEROL
     Dosage: 1 DF, Q24H (10 YEARS)
     Route: 048

REACTIONS (16)
  - Cough [Unknown]
  - Arthralgia [Unknown]
  - Pneumonia [Unknown]
  - Asthma [Unknown]
  - Chest pain [Unknown]
  - Product dose omission issue [Unknown]
  - Pulmonary congestion [Unknown]
  - Chest discomfort [Unknown]
  - Pyrexia [Recovered/Resolved]
  - Influenza [Recovered/Resolved]
  - Headache [Unknown]
  - Choking [Unknown]
  - COVID-19 [Recovered/Resolved with Sequelae]
  - Asphyxia [Recovered/Resolved]
  - Dyspnoea [Unknown]
  - Malaise [Recovered/Resolved]

NARRATIVE: CASE EVENT DATE: 20210405
